FAERS Safety Report 9536095 (Version 1)
Quarter: 2013Q2

REPORT INFORMATION
  Report Type: Spontaneous
  Country: US (occurrence: None)
  Receive Date: 20130517
  Receipt Date: 20130517
  Transmission Date: 20140414
  Serious: No
  Sender: FDA-Public Use
  Company Number: 1000042225

PATIENT
  Age: 63 Year
  Sex: Female

DRUGS (6)
  1. VIBRYD (VILAZ ODONE)(10 MILLIGRAM, TABLETS) [Suspect]
     Indication: DEPRESSION
     Dosage: 5 MG (5 MG, 1 IN 1 D), ORAL
     Route: 048
     Dates: start: 201205, end: 2012
  2. VIIBRYD [Suspect]
     Indication: DEPRESSION
     Dosage: 5 MG (5 MG, 1 IN 1 D), ORAL
     Route: 048
     Dates: start: 201205, end: 2012
  3. VIIBRYD (VILAZODONE HYDROCHLORIDE) (TABLETS) [Suspect]
     Indication: DEPRESSION
     Dosage: 40 MG (40 MG, 1 IN 1 D), ORAL
     Route: 048
     Dates: start: 2012, end: 2012
  4. BYSTOLIC (NEBIVOLOL HYDROCHLORIDE) (NNEBIVOLOL HYDROCHLORIDE) [Concomitant]
  5. ASPIRIN (ACETYLSALICYLIC ACID) (ACETYLSALICYLIC ACID) [Concomitant]
  6. VITAMIN D (VITAMIN D) (VITAMIN D) [Concomitant]

REACTIONS (3)
  - Nightmare [None]
  - Fatigue [None]
  - Insomnia [None]
